FAERS Safety Report 10265379 (Version 1)
Quarter: 2014Q2

REPORT INFORMATION
  Report Type: Spontaneous
  Country: FR (occurrence: None)
  Receive Date: 20140624
  Receipt Date: 20140624
  Transmission Date: 20141212
  Serious: Yes (Hospitalization)
  Sender: FDA-Public Use
  Company Number: 2014COV00016

PATIENT
  Age: 42 Year
  Sex: Female

DRUGS (4)
  1. PLAQUENIL [Suspect]
     Indication: SJOGREN^S SYNDROME
     Route: 048
     Dates: start: 20140310
  2. PREDNISONE [Suspect]
     Indication: SJOGREN^S SYNDROME
     Route: 048
     Dates: start: 20140310
  3. SEROPLEX [Concomitant]
  4. IMOVANE [Concomitant]

REACTIONS (2)
  - Acute febrile neutrophilic dermatosis [None]
  - Acute febrile neutrophilic dermatosis [None]
